FAERS Safety Report 5345321-3 (Version None)
Quarter: 2007Q2

REPORT INFORMATION
  Report Type: 
  Country: None (occurrence: None)
  Receive Date: 20070601
  Receipt Date: 20070601
  Transmission Date: 20071010
  Serious: Yes (Hospitalization)
  Sender: FDA-Public Use
  Company Number: None

PATIENT
  Age: 87 Year
  Sex: Male

DRUGS (7)
  1. IRESSA [Suspect]
     Indication: LUNG NEOPLASM MALIGNANT
     Dosage: 250MG PO DAILY
     Route: 048
     Dates: start: 20061011
  2. RADIATION [Suspect]
     Dosage: 4.2GY X 12
     Dates: start: 20061016, end: 20061031
  3. GLYBURIDE [Concomitant]
  4. TERAZOSIN HCL [Concomitant]
  5. DIOVAN [Concomitant]
  6. LIPITOR [Concomitant]
  7. METOPROLOL SUCCINATE [Concomitant]

REACTIONS (3)
  - CHEST PAIN [None]
  - FLANK PAIN [None]
  - NASOPHARYNGITIS [None]
